FAERS Safety Report 8151676-7 (Version None)
Quarter: 2012Q1

REPORT INFORMATION
  Report Type: 
  Country: None (occurrence: None)
  Receive Date: 20120221
  Receipt Date: 20120209
  Transmission Date: 20120608
  Serious: Yes (Hospitalization)
  Sender: FDA-Public Use
  Company Number: GR-ACCORD-012397

PATIENT
  Age: 57 Year
  Sex: Male

DRUGS (4)
  1. PYRIDOSTIGMINE BROMIDE [Concomitant]
     Indication: MYASTHENIA GRAVIS
  2. PREDNISOLONE [Suspect]
     Indication: MYASTHENIA GRAVIS
     Dosage: 5MG/DAY
  3. IMMUNE GLOBULIN NOS [Concomitant]
     Indication: MYASTHENIA GRAVIS
     Route: 042
  4. MYCOPHENOLATE MOFETIL [Suspect]
     Indication: MYASTHENIA GRAVIS

REACTIONS (2)
  - BRAIN ABSCESS [None]
  - OFF LABEL USE [None]
